FAERS Safety Report 15100060 (Version 1)
Quarter: 2018Q3

REPORT INFORMATION
  Report Type: Report from Study
  Country: FR (occurrence: FR)
  Receive Date: 20180703
  Receipt Date: 20180703
  Transmission Date: 20181010
  Serious: Yes (Other)
  Sender: FDA-Public Use
  Company Number: FR-TEVA-2018-FR-919163

PATIENT
  Age: 59 Year
  Sex: Female

DRUGS (7)
  1. PREDNISONE. [Suspect]
     Active Substance: PREDNISONE
     Indication: IMMUNOSUPPRESSANT DRUG THERAPY
     Route: 065
  2. PREDNISONE. [Suspect]
     Active Substance: PREDNISONE
     Indication: CHRONIC KIDNEY DISEASE
  3. TACROLIMUS. [Suspect]
     Active Substance: TACROLIMUS
     Indication: IMMUNOSUPPRESSANT DRUG THERAPY
     Dosage: ADAPTED
     Route: 065
  4. TACROLIMUS. [Suspect]
     Active Substance: TACROLIMUS
     Indication: CHRONIC KIDNEY DISEASE
  5. MYCOPHENOLATE MOFETIL. [Suspect]
     Active Substance: MYCOPHENOLATE MOFETIL
     Indication: IMMUNOSUPPRESSANT DRUG THERAPY
     Route: 065
  6. POSACONAZOLE [Suspect]
     Active Substance: POSACONAZOLE
     Indication: PHAEHYPHOMYCOSIS
     Route: 048
     Dates: start: 201507
  7. MYCOPHENOLATE MOFETIL. [Suspect]
     Active Substance: MYCOPHENOLATE MOFETIL
     Indication: CHRONIC KIDNEY DISEASE

REACTIONS (4)
  - Klebsiella infection [Unknown]
  - Treatment failure [Unknown]
  - Phaeohyphomycosis [Recovering/Resolving]
  - Enterobacter infection [Unknown]

NARRATIVE: CASE EVENT DATE: 2014
